FAERS Safety Report 5064512-2 (Version None)
Quarter: 2006Q3

REPORT INFORMATION
  Report Type: 
  Country: None (occurrence: None)
  Receive Date: 20060728
  Receipt Date: 20060718
  Transmission Date: 20061208
  Serious: Yes (Hospitalization)
  Sender: FDA-Public Use
  Company Number: PHBS2006US10823

PATIENT
  Age: 57 Year
  Sex: Female

DRUGS (1)
  1. IMATINIB [Suspect]
     Indication: ACUTE LYMPHOCYTIC LEUKAEMIA

REACTIONS (12)
  - CHILLS [None]
  - FATIGUE [None]
  - HEPATIC FUNCTION ABNORMAL [None]
  - LUNG CONSOLIDATION [None]
  - LUNG NEOPLASM [None]
  - NEUTROPENIA [None]
  - PLEURECTOMY [None]
  - PULMONARY MASS [None]
  - PULMONARY NECROSIS [None]
  - PYREXIA [None]
  - THORACOTOMY [None]
  - ZYGOMYCOSIS [None]
